FAERS Safety Report 11907780 (Version 1)
Quarter: 2016Q1

REPORT INFORMATION
  Report Type: Report from Study
  Country: US (occurrence: US)
  Receive Date: 20160111
  Receipt Date: 20160111
  Transmission Date: 20160526
  Serious: No
  Sender: FDA-Public Use
  Company Number: US-ABBVIE-15P-163-1483612-00

PATIENT
  Age: 55 Year
  Sex: Male

DRUGS (18)
  1. ALPRAZOLAM. [Concomitant]
     Active Substance: ALPRAZOLAM
     Indication: PRODUCT USED FOR UNKNOWN INDICATION
     Route: 048
     Dates: start: 20151001
  2. IBUPROFEN. [Concomitant]
     Active Substance: IBUPROFEN
     Indication: PRODUCT USED FOR UNKNOWN INDICATION
     Dosage: 1 DOSE AS NEEDED
     Route: 048
     Dates: start: 20151001
  3. RANITIDINE [Concomitant]
     Active Substance: RANITIDINE\RANITIDINE HYDROCHLORIDE
     Dosage: 1 DOSE DAILY
     Route: 048
     Dates: start: 20151001
  4. DUOPA [Suspect]
     Active Substance: CARBIDOPA\LEVODOPA
     Dosage: 3.4ML PER HOUR
     Route: 050
     Dates: start: 20151014
  5. NADOLOL. [Concomitant]
     Active Substance: NADOLOL
     Indication: PRODUCT USED FOR UNKNOWN INDICATION
     Dosage: 1 TAB DAILY AS NEEDED
     Route: 048
     Dates: start: 20151001
  6. STOOL SOFTENER [Concomitant]
     Active Substance: DOCUSATE CALCIUM
     Indication: PRODUCT USED FOR UNKNOWN INDICATION
     Dosage: 1 TAB 2-3 DAILY
     Route: 048
     Dates: start: 20151001
  7. FISH OIL [Concomitant]
     Active Substance: FISH OIL
     Dosage: 1 DOSE DAILY
     Route: 048
     Dates: start: 20151001
  8. FIBERSON [Concomitant]
     Indication: PRODUCT USED FOR UNKNOWN INDICATION
     Dosage: 1 TAB TWICE A DAY
     Route: 048
     Dates: start: 20151001
  9. QUETIAPINE [Concomitant]
     Active Substance: QUETIAPINE
     Indication: PRODUCT USED FOR UNKNOWN INDICATION
     Dosage: 1 DOSE 3 TIMES DAILY
     Route: 048
     Dates: start: 20151001
  10. RANITIDINE [Concomitant]
     Active Substance: RANITIDINE\RANITIDINE HYDROCHLORIDE
     Indication: PRODUCT USED FOR UNKNOWN INDICATION
     Dosage: 1 TAB AS NEEDED
     Route: 048
     Dates: start: 20151001
  11. RANITIDINE [Concomitant]
     Active Substance: RANITIDINE\RANITIDINE HYDROCHLORIDE
     Dosage: 1 TAB AT BEDTIME
     Route: 048
     Dates: start: 20151001
  12. FISH OIL [Concomitant]
     Active Substance: FISH OIL
     Dosage: 1 TAB AT BEDTIME
     Route: 048
     Dates: start: 20151001
  13. VITAMINS NOS [Concomitant]
     Active Substance: VITAMINS
     Indication: PRODUCT USED FOR UNKNOWN INDICATION
     Dosage: 1 TAB DAILY
     Route: 048
     Dates: start: 20151001
  14. SEROQUEL [Concomitant]
     Active Substance: QUETIAPINE FUMARATE
     Indication: PRODUCT USED FOR UNKNOWN INDICATION
     Dosage: 1 DOSE AS DIRECTED
     Route: 048
     Dates: start: 20151001
  15. RANITIDINE [Concomitant]
     Active Substance: RANITIDINE\RANITIDINE HYDROCHLORIDE
     Dosage: 1 TAB AS NEEDED
     Route: 048
     Dates: start: 20151001
  16. FISH OIL [Concomitant]
     Active Substance: FISH OIL
     Indication: PRODUCT USED FOR UNKNOWN INDICATION
     Dosage: 1 DOSE DAILY
     Route: 048
     Dates: start: 20151001
  17. FISH OIL [Concomitant]
     Active Substance: FISH OIL
     Dosage: 1 TAB AS NEEDED
     Route: 048
     Dates: start: 20151001
  18. DUOPA [Suspect]
     Active Substance: CARBIDOPA\LEVODOPA
     Indication: PARKINSON^S DISEASE
     Route: 050
     Dates: start: 20151003, end: 20151013

REACTIONS (6)
  - Stoma site erythema [Not Recovered/Not Resolved]
  - Drug dose omission [Recovered/Resolved]
  - Device dislocation [Recovered/Resolved]
  - Device difficult to use [Unknown]
  - Medical device change [Recovered/Resolved]
  - Stoma site discharge [Not Recovered/Not Resolved]

NARRATIVE: CASE EVENT DATE: 201510
